FAERS Safety Report 7006427 (Version 2)
Quarter: 2013Q1

REPORT INFORMATION
  Report Type: Report from Study
  Country: US (occurrence: US)
  Receive Date: 20090529
  Receipt Date: 20130221
  Transmission Date: 20140127
  Serious: Yes (Death, Hospitalization)
  Sender: FDA-Public Use
  Company Number: US-BRISTOL-MYERS SQUIBB COMPANY-14638324

PATIENT
  Age: 83 Year
  Sex: Male
  Weight: 67.9 kg

DRUGS (13)
  1. MEGACE [Suspect]
     Indication: WEIGHT DECREASED
     Route: 048
     Dates: start: 20090429, end: 20090429
  2. PREDNISONE [Concomitant]
     Indication: PROSTATE CANCER
     Route: 048
     Dates: start: 20081117, end: 20090429
  3. SUNITINIB MALATE [Concomitant]
     Indication: PROSTATE CANCER
     Route: 048
     Dates: start: 20090226, end: 20090428
  4. ACIPHEX [Concomitant]
     Indication: GASTROOESOPHAGEAL REFLUX DISEASE
  5. FRAGMIN [Concomitant]
     Indication: PULMONARY EMBOLISM
     Dates: start: 20090331
  6. ATENOLOL [Concomitant]
     Indication: TRANSIENT ISCHAEMIC ATTACK
  7. ALPRAZOLAM [Concomitant]
     Indication: ANXIETY
  8. COLACE [Concomitant]
     Indication: DIARRHOEA
     Dates: start: 20090402
  9. LOVASTATIN [Concomitant]
     Indication: BLOOD CHOLESTEROL
  10. METFORMIN HCL [Concomitant]
     Indication: DIABETES MELLITUS
  11. AVELOX [Concomitant]
     Indication: PNEUMONIA
     Dates: end: 20090429
  12. OXYCODONE [Concomitant]
     Indication: PAIN
     Dates: start: 20090331
  13. AMBIEN [Concomitant]
     Indication: INSOMNIA
     Dates: start: 20090120

REACTIONS (3)
  - Acute myocardial infarction [Fatal]
  - Pain [Recovered/Resolved]
  - Nausea [Recovered/Resolved]
